FAERS Safety Report 5631968-3 (Version None)
Quarter: 2008Q1

REPORT INFORMATION
  Report Type: 
  Country: None (occurrence: None)
  Receive Date: 20080220
  Receipt Date: 20080206
  Transmission Date: 20080703
  Serious: Yes (Other)
  Sender: FDA-Public Use
  Company Number: US-ELI_LILLY_AND_COMPANY-US200802001476

PATIENT
  Age: 71 Year
  Sex: Female

DRUGS (14)
  1. ALIMTA [Suspect]
     Indication: NON-SMALL CELL LUNG CANCER
     Dosage: 500 MG/M2, 21 DAY CYCLE
     Dates: start: 20071219
  2. LUNESTA [Concomitant]
     Indication: INSOMNIA
  3. PAXIL [Concomitant]
     Indication: ANTIDEPRESSANT THERAPY
  4. POTASSIUM CHLORIDE [Concomitant]
  5. MYLANTA [Concomitant]
  6. PRILOSEC [Concomitant]
  7. CARAFATE [Concomitant]
  8. NORVASC [Concomitant]
     Indication: BLOOD PRESSURE
  9. LASIX [Concomitant]
     Indication: DIURETIC THERAPY
  10. VITAMIN B-12 [Concomitant]
     Indication: SUPPLEMENTATION THERAPY
     Dosage: 1000 MG, UNK
     Route: 030
     Dates: start: 20071212, end: 20071220
  11. FOLIC ACID [Concomitant]
     Dosage: 0.8 MG, DAILY (1/D)
     Route: 048
     Dates: start: 20071219
  12. DECADRON                                /CAN/ [Concomitant]
     Indication: SUPPLEMENTATION THERAPY
     Dosage: 8 MG, OTHER
     Route: 042
     Dates: start: 20071219, end: 20071219
  13. DECADRON                                /CAN/ [Concomitant]
     Dosage: 8 MG, DAILY (1/D)
     Route: 048
     Dates: start: 20071220, end: 20071221
  14. ANTIEMETICS AND ANTINAUSEANTS [Concomitant]
     Dosage: UNK, OTHER

REACTIONS (2)
  - DYSPHAGIA [None]
  - VAGINAL HAEMORRHAGE [None]
